FAERS Safety Report 5404326-4 (Version None)
Quarter: 2007Q4

REPORT INFORMATION
  Report Type: 
  Country: None (occurrence: None)
  Receive Date: 20070713
  Receipt Date: 20070409
  Transmission Date: 20080405
  Serious: Yes (Other)
  Sender: FDA-Public Use
  Company Number: 2007021482

PATIENT
  Age: 19 Year
  Sex: Female
  Weight: 56 kg

DRUGS (2)
  1. DEPO-SUBQ PROVERA 104 [Suspect]
     Indication: CONTRACEPTION
     Dosage: 104 MG (104 MG, 1ST INJECTION), SUBCUTANEOUS
     Route: 058
     Dates: start: 20060925, end: 20060925
  2. DEPO-SUBQ PROVERA 104 [Suspect]
     Dosage: 104 MG (104 MG, LAST INJECTION), SUBCUTANEOUS
     Route: 058
     Dates: start: 20061218, end: 20061218

REACTIONS (1)
  - INJECTION SITE REACTION [None]
